FAERS Safety Report 19129511 (Version 2)
Quarter: 2021Q4

REPORT INFORMATION
  Report Type: Spontaneous
  Country: US (occurrence: US)
  Receive Date: 20210413
  Receipt Date: 20211028
  Transmission Date: 20220303
  Serious: No
  Sender: FDA-Public Use
  Company Number: US-PFIZER INC-2021364518

PATIENT
  Age: 72 Year
  Sex: Female

DRUGS (1)
  1. XELJANZ XR [Suspect]
     Active Substance: TOFACITINIB CITRATE
     Indication: Rheumatoid arthritis
     Dosage: 11 MG, DAILY
     Route: 048
     Dates: start: 202102

REACTIONS (7)
  - Muscular weakness [Unknown]
  - Fatigue [Unknown]
  - Arthralgia [Unknown]
  - Fibromyalgia [Unknown]
  - Pain [Unknown]
  - Cystitis [Unknown]
  - Blood urine present [Unknown]

NARRATIVE: CASE EVENT DATE: 20210101
